FAERS Safety Report 14141669 (Version 1)
Quarter: 2017Q4

REPORT INFORMATION
  Report Type: Spontaneous
  Country: US (occurrence: US)
  Receive Date: 20171030
  Receipt Date: 20171030
  Transmission Date: 20180321
  Serious: No
  Sender: FDA-Public Use
  Company Number: US-GLAXOSMITHKLINE-US2017163709

PATIENT
  Age: 85 Year
  Sex: Female

DRUGS (2)
  1. FOLIC ACID. [Concomitant]
     Active Substance: FOLIC ACID
  2. INCRUSE ELLIPTA [Suspect]
     Active Substance: UMECLIDINIUM BROMIDE
     Indication: DYSPNOEA
     Dosage: 1 PUFF(S), 1D
     Route: 055
     Dates: start: 20171016, end: 20171016

REACTIONS (11)
  - Dyspnoea [Recovered/Resolved]
  - Dysphagia [Not Recovered/Not Resolved]
  - Gingival pain [Recovered/Resolved]
  - Oropharyngeal pain [Not Recovered/Not Resolved]
  - Oral mucosal blistering [Not Recovered/Not Resolved]
  - Headache [Recovered/Resolved]
  - Pain in jaw [Recovered/Resolved]
  - Candida infection [Not Recovered/Not Resolved]
  - Dysgeusia [Not Recovered/Not Resolved]
  - Chest discomfort [Recovered/Resolved]
  - Dizziness [Recovered/Resolved]

NARRATIVE: CASE EVENT DATE: 20171016
